FAERS Safety Report 8759503 (Version 7)
Quarter: 2013Q1

REPORT INFORMATION
  Report Type: Spontaneous
  Country: US (occurrence: US)
  Receive Date: 20120829
  Receipt Date: 20130117
  Transmission Date: 20140127
  Serious: Yes (Hospitalization, Disabling, Other)
  Sender: FDA-Public Use
  Company Number: US-009507513-1204USA02426

PATIENT
  Sex: 0

DRUGS (4)
  1. FOSAMAX [Suspect]
     Indication: OSTEOPOROSIS
     Dosage: UNK MG, UNK
     Route: 048
     Dates: start: 1995, end: 1998
  2. FOSAMAX [Suspect]
     Dosage: 70 UNK, UNK
     Dates: start: 200509, end: 200602
  3. ACTONEL [Suspect]
     Indication: OSTEOPOROSIS
     Dosage: 35 MG, QW
     Route: 048
     Dates: start: 200602, end: 201004
  4. CYMBALTA [Concomitant]
     Indication: HEADACHE
     Dosage: 60 MG, UNK
     Route: 048
     Dates: start: 1970

REACTIONS (42)
  - Femur fracture [Not Recovered/Not Resolved]
  - Femur fracture [Not Recovered/Not Resolved]
  - Open reduction of fracture [Unknown]
  - Open reduction of fracture [Unknown]
  - Meningioma surgery [Unknown]
  - Sarcoma [Unknown]
  - Haemorrhagic anaemia [Recovering/Resolving]
  - Myasthenia gravis [Unknown]
  - Fall [Unknown]
  - Subarachnoid haemorrhage [Recovering/Resolving]
  - Fall [Unknown]
  - Postoperative fever [Recovering/Resolving]
  - Neuropathy peripheral [Unknown]
  - Muscle rupture [Unknown]
  - Meningioma surgery [Unknown]
  - Osteoarthritis [Unknown]
  - Exostosis [Unknown]
  - Muscle strain [Unknown]
  - Seroma [Unknown]
  - Skin disorder [Unknown]
  - Gait disturbance [Unknown]
  - Balance disorder [Not Recovered/Not Resolved]
  - Fall [Unknown]
  - Musculoskeletal stiffness [Unknown]
  - Head injury [Unknown]
  - VIIth nerve paralysis [Unknown]
  - Cerebral ischaemia [Unknown]
  - Cerebrovascular disorder [Unknown]
  - Post concussion syndrome [Unknown]
  - Laceration [Unknown]
  - Peripheral vascular disorder [Unknown]
  - Laceration [Unknown]
  - Fall [Unknown]
  - Myasthenia gravis [Unknown]
  - Asthenia [Not Recovered/Not Resolved]
  - Arthralgia [Unknown]
  - Arthralgia [Unknown]
  - Oedema peripheral [Unknown]
  - Pain in jaw [Unknown]
  - Dizziness [Unknown]
  - Muscle spasms [Unknown]
  - Constipation [Unknown]
